FAERS Safety Report 9122648 (Version 1)
Quarter: 2013Q1

REPORT INFORMATION
  Report Type: Spontaneous
  Country: US (occurrence: None)
  Receive Date: 20130131
  Receipt Date: 20130131
  Transmission Date: 20140127
  Serious: Yes (Other)
  Sender: FDA-Public Use
  Company Number: JPI-P-029315

PATIENT
  Age: 36 Year
  Sex: Female

DRUGS (1)
  1. XYREM (500 MILLIGRAM/MILLILITERS, SOLUTION) (SODIUM OXYBATE) [Suspect]
     Indication: CATAPLEXY
     Dosage: 4.5 GM 2.25 MG, 2 IN 1 D), ORAL
     Route: 048
     Dates: start: 20120912

REACTIONS (6)
  - Gallbladder operation [None]
  - Nausea [None]
  - Headache [None]
  - Fatigue [None]
  - Hypoaesthesia [None]
  - Paraesthesia [None]
